FAERS Safety Report 17657014 (Version 1)
Quarter: 2020Q2

REPORT INFORMATION
  Report Type: Other
  Country: DE (occurrence: DE)
  Receive Date: 20200410
  Receipt Date: 20200410
  Transmission Date: 20200713
  Serious: Yes (Hospitalization)
  Sender: FDA-Public Use
  Company Number: DE-COLLEGIUM PHARMACEUTICAL, INC.-DE-2020COL000326

PATIENT
  Age: 48 Year
  Sex: Female

DRUGS (2)
  1. HYDROMORPHON AL [Suspect]
     Active Substance: HYDROMORPHONE HYDROCHLORIDE
     Indication: OSTEOARTHRITIS
     Dosage: 48 MG, QD
     Route: 048
     Dates: start: 2017
  2. TAPENTADOL [Suspect]
     Active Substance: TAPENTADOL
     Indication: OSTEOARTHRITIS
     Dosage: UNK
     Route: 048

REACTIONS (4)
  - Post-traumatic neck syndrome [Not Recovered/Not Resolved]
  - Microsleep [Recovered/Resolved]
  - Traumatic haematoma [Not Recovered/Not Resolved]
  - Road traffic accident [Unknown]

NARRATIVE: CASE EVENT DATE: 20200319
